FAERS Safety Report 18991868 (Version 1)
Quarter: 2021Q1

REPORT INFORMATION
  Report Type: Spontaneous
  Country: US (occurrence: US)
  Receive Date: 20210309
  Receipt Date: 20210309
  Transmission Date: 20210420
  Serious: Yes (Hospitalization)
  Sender: FDA-Public Use
  Company Number: None

PATIENT
  Sex: Male

DRUGS (7)
  1. DALFAMPRIDINE. [Suspect]
     Active Substance: DALFAMPRIDINE
     Indication: NERVOUS SYSTEM DISORDER
     Route: 048
     Dates: start: 20210209
  2. ELIQUIS [Concomitant]
     Active Substance: APIXABAN
     Dates: start: 20210224
  3. ATORVASTATIN [Concomitant]
     Active Substance: ATORVASTATIN
     Dates: start: 20210224
  4. METOPROLOL TARTRATE. [Concomitant]
     Active Substance: METOPROLOL TARTRATE
     Dates: start: 20210202
  5. DALFAMPRIDINE. [Suspect]
     Active Substance: DALFAMPRIDINE
     Indication: MULTIPLE SCLEROSIS
     Route: 048
     Dates: start: 20210209
  6. DALFAMPRIDINE. [Suspect]
     Active Substance: DALFAMPRIDINE
     Indication: HYPERTENSION
     Route: 048
     Dates: start: 20210209
  7. MAYZENT [Concomitant]
     Active Substance: SIPONIMOD
     Dates: start: 20201229

REACTIONS (1)
  - Hospitalisation [None]
